FAERS Safety Report 13024773 (Version 1)
Quarter: 2016Q4

REPORT INFORMATION
  Report Type: Spontaneous
  Country: US (occurrence: US)
  Receive Date: 20161213
  Receipt Date: 20161213
  Transmission Date: 20170207
  Serious: Yes (Other)
  Sender: FDA-Public Use
  Company Number: US-ROCHE-1680437

PATIENT
  Sex: Male

DRUGS (1)
  1. ACTIVASE [Suspect]
     Active Substance: ALTEPLASE
     Indication: CEREBROVASCULAR ACCIDENT
     Dosage: LOADING DOSE 6.62MG
     Route: 065
     Dates: start: 20151101

REACTIONS (3)
  - Petechiae [Unknown]
  - Basal ganglia infarction [Unknown]
  - International normalised ratio decreased [Unknown]
